FAERS Safety Report 10070901 (Version 1)
Quarter: 2014Q2

REPORT INFORMATION
  Report Type: Spontaneous
  Country: US (occurrence: US)
  Receive Date: 20140410
  Receipt Date: 20140410
  Transmission Date: 20141212
  Serious: Yes (Other)
  Sender: FDA-Public Use
  Company Number: PHHY2014US041013

PATIENT
  Age: 62 Year
  Sex: Female

DRUGS (13)
  1. AZATHIOPRINE [Suspect]
     Indication: CROHN^S DISEASE
     Dosage: 50 MG DAILY
  2. AZATHIOPRINE [Suspect]
     Dosage: 150 MG DAILY
  3. PREDNISONE [Suspect]
     Indication: CROHN^S DISEASE
     Dosage: 40 MG DAILY
     Route: 048
  4. ACETAMINOPHEN [Concomitant]
     Dosage: 650 MG, UNK
  5. ALENDRONATE [Concomitant]
  6. CYANOCOBALAMIN [Concomitant]
  7. FOLIC ACID [Concomitant]
  8. LANSOPRAZOLE [Concomitant]
  9. LISINOPRIL [Concomitant]
  10. PYRIDOXINE [Concomitant]
  11. WARFARIN [Concomitant]
  12. VITAMIN D [Concomitant]
  13. CORTICOSTEROIDS [Concomitant]
     Route: 042

REACTIONS (4)
  - Hepatotoxicity [Recovered/Resolved]
  - Aspartate aminotransferase increased [Recovered/Resolved]
  - Alanine aminotransferase increased [Recovered/Resolved]
  - Blood alkaline phosphatase increased [Recovered/Resolved]
